FAERS Safety Report 6046545-2 (Version None)
Quarter: 2009Q1

REPORT INFORMATION
  Report Type: 
  Country: None (occurrence: None)
  Receive Date: 20090122
  Receipt Date: 20090115
  Transmission Date: 20090719
  Serious: Yes (Hospitalization)
  Sender: FDA-Public Use
  Company Number: FR-ASTRAZENECA-2009CG00169

PATIENT
  Age: 23129 Day
  Sex: Male

DRUGS (5)
  1. CASODEX [Suspect]
     Route: 048
     Dates: start: 20080501, end: 20081022
  2. CHONDROSULF [Suspect]
     Route: 048
     Dates: start: 20080901, end: 20081022
  3. TAMOXIFEN CITRATE [Suspect]
     Dates: start: 20080501, end: 20081022
  4. PREVISCAN [Suspect]
     Dates: start: 20080501, end: 20081022
  5. TAREG [Concomitant]
     Route: 048

REACTIONS (1)
  - DERMATITIS EXFOLIATIVE [None]
